FAERS Safety Report 7775479-8 (Version None)
Quarter: 2011Q3

REPORT INFORMATION
  Report Type: 
  Country: None (occurrence: None)
  Receive Date: 20110923
  Receipt Date: 20110922
  Transmission Date: 20111222
  Serious: Yes (Death, Other)
  Sender: FDA-Public Use
  Company Number: PHHY2011AU60888

PATIENT
  Sex: Female

DRUGS (1)
  1. EXJADE [Suspect]
     Dosage: UNK

REACTIONS (5)
  - HAEMOSIDEROSIS [None]
  - SEPSIS [None]
  - ACUTE MYELOID LEUKAEMIA [None]
  - INFLAMMATION [None]
  - DRUG INEFFECTIVE [None]
